FAERS Safety Report 6311554-2 (Version None)
Quarter: 2009Q3

REPORT INFORMATION
  Report Type: 
  Country: None (occurrence: None)
  Receive Date: 20090813
  Receipt Date: 20090813
  Transmission Date: 20100115
  Serious: Yes (Hospitalization)
  Sender: FDA-Public Use
  Company Number: None

PATIENT
  Age: 49 Year
  Sex: Female
  Weight: 89.3586 kg

DRUGS (10)
  1. CLONAZEPAM [Suspect]
     Indication: TARDIVE DYSKINESIA
     Dosage: 1MG 3X DAILY ORAL
     Route: 048
     Dates: start: 20090429
  2. ALPRAZOLAM [Concomitant]
  3. LITHIUM CARBONATE [Concomitant]
  4. BUPROPION HCL [Concomitant]
  5. HYDROCHLOROTHIAZIDE [Concomitant]
  6. PROPRANOLOL [Concomitant]
  7. ROZEREM [Concomitant]
  8. NAPROXEN [Concomitant]
  9. BENADRYL [Concomitant]
  10. BACLOFEN [Concomitant]

REACTIONS (7)
  - ACNE [None]
  - CONDITION AGGRAVATED [None]
  - DEPRESSION [None]
  - DRUG DEPENDENCE [None]
  - MEMORY IMPAIRMENT [None]
  - OVERDOSE [None]
  - SKIN ULCER [None]
